FAERS Safety Report 9258495 (Version 1)
Quarter: 2013Q1

REPORT INFORMATION
  Report Type: Spontaneous
  Country: US (occurrence: None)
  Receive Date: 20121212
  Receipt Date: 20121212
  Transmission Date: 20140127
  Serious: No
  Sender: FDA-Public Use
  Company Number: 1209USA011125

PATIENT
  Age: 51 Year
  Sex: Male

DRUGS (7)
  1. VICTRELIS [Suspect]
     Dosage: 800 MG , TID , ORAL
     Route: 048
     Dates: start: 201207
  2. PEGASYS (PEGINTERFERON ALFA-2A) [Suspect]
  3. RIBASPHERE (RIBAVIRIN) [Suspect]
  4. ATENOLOL (ATENOLOL) [Concomitant]
  5. HYDROCHLOROTHIAZIDE (HYDROCHLOROTHIAZIDE) [Concomitant]
  6. CINNAMON (CINNAMON) [Concomitant]
  7. VITAMINS (UNSPECIFIED) (VITAMINS (UNSPECIFIED) [Concomitant]

REACTIONS (2)
  - Dysgeusia [None]
  - Nausea [None]
